FAERS Safety Report 25748025 (Version 2)
Quarter: 2025Q4

REPORT INFORMATION
  Report Type: Spontaneous
  Country: US (occurrence: US)
  Receive Date: 20250901
  Receipt Date: 20251111
  Transmission Date: 20260118
  Serious: No
  Sender: JOHNSON AND JOHNSON
  Company Number: US-JNJFOC-20250828617

PATIENT

DRUGS (2)
  1. XARELTO [Suspect]
     Active Substance: RIVAROXABAN
     Indication: Product used for unknown indication
     Route: 048
  2. REPATHA [Concomitant]
     Active Substance: EVOLOCUMAB
     Indication: Blood cholesterol

REACTIONS (5)
  - Atrioventricular block [Unknown]
  - Urinary incontinence [Not Recovered/Not Resolved]
  - Headache [Not Recovered/Not Resolved]
  - Amnesia [Unknown]
  - Product label issue [Unknown]
